FAERS Safety Report 12587661 (Version 1)
Quarter: 2016Q3

REPORT INFORMATION
  Report Type: Spontaneous
  Country: None (occurrence: RO)
  Receive Date: 20160725
  Receipt Date: 20160725
  Transmission Date: 20161109
  Serious: Yes (Other)
  Sender: FDA-Public Use
  Company Number: RO-MERCK KGAA-1055484

PATIENT

DRUGS (1)
  1. NOVOTHYROX [Suspect]
     Active Substance: LEVOTHYROXINE SODIUM

REACTIONS (6)
  - Petechiae [None]
  - Haemorrhage [None]
  - Vascular skin disorder [None]
  - Varicose vein [None]
  - Rash [None]
  - Flushing [None]
